FAERS Safety Report 4660276-2 (Version None)
Quarter: 2005Q2

REPORT INFORMATION
  Report Type: 
  Country: None (occurrence: None)
  Receive Date: 20050419
  Receipt Date: 20050131
  Transmission Date: 20051028
  Serious: Yes (Other)
  Sender: FDA-Public Use
  Company Number: US-2005-001599

PATIENT
  Age: 64 Year
  Sex: Female
  Weight: 54.6 kg

DRUGS (1)
  1. ULTRAVIST (PHARMACY BULK) [Suspect]
     Indication: COMPUTERISED TOMOGRAM ABDOMEN
     Dosage: 125 ML. 1 DOSE, INTRAVENOUS
     Route: 042
     Dates: start: 20050128, end: 20050128

REACTIONS (6)
  - ACUTE RESPIRATORY FAILURE [None]
  - ANAPHYLACTOID REACTION [None]
  - BLOOD PRESSURE INCREASED [None]
  - HEART RATE INCREASED [None]
  - HYPOTENSION [None]
  - STRIDOR [None]
